FAERS Safety Report 7178329-6 (Version None)
Quarter: 2010Q4

REPORT INFORMATION
  Report Type: 
  Country: None (occurrence: None)
  Receive Date: 20101220
  Receipt Date: 20101207
  Transmission Date: 20110411
  Serious: Yes (Other)
  Sender: FDA-Public Use
  Company Number: IN-WATSON-2010-15840

PATIENT

DRUGS (1)
  1. CEFUROXIME SODIUM [Suspect]
     Indication: PRODUCT USED FOR UNKNOWN INDICATION
     Dosage: UNK
     Route: 042

REACTIONS (6)
  - AGITATION [None]
  - ANXIETY [None]
  - CONSCIOUSNESS FLUCTUATING [None]
  - DISORIENTATION [None]
  - PSYCHOTIC DISORDER [None]
  - RESTLESSNESS [None]
